FAERS Safety Report 4393187-0 (Version None)
Quarter: 2004Q3

REPORT INFORMATION
  Report Type: 
  Country: None (occurrence: None)
  Receive Date: 20040702
  Receipt Date: 20040621
  Transmission Date: 20050211
  Serious: Yes (Other)
  Sender: FDA-Public Use
  Company Number: 2004033734

PATIENT
  Age: 69 Year
  Sex: Female
  Weight: 59.8 kg

DRUGS (3)
  1. LIPITOR [Suspect]
     Indication: HYPERLIPIDAEMIA
     Dosage: 10 MG (10 MG, 1 IN 1D), ORAL
     Route: 048
     Dates: start: 20040115, end: 20040211
  2. DIMEMORFAN PHOSPHATE (DIMEMORFAN PHOSPHATE) [Concomitant]
  3. FUROSEMIDE [Concomitant]

REACTIONS (4)
  - EPISTAXIS [None]
  - HAEMORRHAGIC DIATHESIS [None]
  - PULMONARY ALVEOLAR HAEMORRHAGE [None]
  - VASCULITIS [None]
